FAERS Safety Report 6668232-X (Version None)
Quarter: 2010Q2

REPORT INFORMATION
  Report Type: 
  Country: None (occurrence: None)
  Receive Date: 20100406
  Receipt Date: 20100325
  Transmission Date: 20101027
  Serious: Yes (Other)
  Sender: FDA-Public Use
  Company Number: JP-JNJFOC-20100304803

PATIENT
  Age: 68 Year
  Sex: Female

DRUGS (9)
  1. CRAVIT [Suspect]
     Indication: BRONCHITIS
     Route: 048
  2. CRAVIT [Suspect]
     Route: 048
  3. CRAVIT [Suspect]
     Route: 048
  4. CRAVIT [Suspect]
     Route: 048
  5. CHLORPHENIRAMINE MALEATE [Concomitant]
     Route: 065
  6. AMBROXOL HYDROCHLORIDE [Concomitant]
     Route: 065
  7. GASTROZEPIN [Concomitant]
     Route: 065
  8. SELBEX [Concomitant]
     Route: 065
  9. POLITOSE [Concomitant]
     Route: 065

REACTIONS (2)
  - DEPRESSED LEVEL OF CONSCIOUSNESS [None]
  - INCORRECT DOSE ADMINISTERED [None]
